FAERS Safety Report 8854026 (Version 1)
Quarter: 2012Q4

REPORT INFORMATION
  Report Type: 
  Country: CR (occurrence: CR)
  Receive Date: 20121022
  Receipt Date: 20121022
  Transmission Date: 20130627
  Serious: Yes (Hospitalization, Other)
  Sender: FDA-Public Use
  Company Number: PHHY2012CR093650

PATIENT
  Sex: Female

DRUGS (3)
  1. RASILEZ [Suspect]
     Indication: HYPERTENSION
     Dosage: 150 mg, per day
     Dates: start: 20101013
  2. PLAVIX [Concomitant]
     Dosage: 75 mg, per day
     Route: 048
     Dates: start: 20101013
  3. LYRICA [Concomitant]
     Dosage: 150 mg, per day
     Route: 048
     Dates: start: 20101013

REACTIONS (7)
  - Pancreatitis [Unknown]
  - Abdominal pain [Unknown]
  - Vomiting [Unknown]
  - Diarrhoea [Unknown]
  - Lipase increased [Unknown]
  - Pancreatic pseudocyst [Unknown]
  - Pancreatic duct obstruction [Unknown]
